FAERS Safety Report 4459648-0 (Version None)
Quarter: 2004Q4

REPORT INFORMATION
  Report Type: 
  Country: None (occurrence: None)
  Receive Date: 20040915
  Receipt Date: 20030828
  Transmission Date: 20050328
  Serious: Yes (Hospitalization, Other)
  Sender: FDA-Public Use
  Company Number: 2003036642

PATIENT
  Age: 69 Year
  Sex: Male
  Weight: 127.0072 kg

DRUGS (3)
  1. GLUCOTROL XL [Suspect]
     Indication: DIABETES MELLITUS
     Dosage: 15 MG (TID), ORAL
     Route: 048
     Dates: end: 20030825
  2. SIMVASTATIN [Concomitant]
  3. SPIRONOLACTONE [Concomitant]

REACTIONS (1)
  - BLOOD GLUCOSE DECREASED [None]
